FAERS Safety Report 15599646 (Version 1)
Quarter: 2018Q4

REPORT INFORMATION
  Report Type: Spontaneous
  Country: US (occurrence: US)
  Receive Date: 20181108
  Receipt Date: 20181108
  Transmission Date: 20190205
  Serious: Yes (Death)
  Sender: FDA-Public Use
  Company Number: US-GILEAD-2018-0372438

PATIENT
  Age: 65 Year
  Sex: Female

DRUGS (6)
  1. MIRTAZAPINE. [Concomitant]
     Active Substance: MIRTAZAPINE
  2. RANEXA [Suspect]
     Active Substance: RANOLAZINE
     Indication: SUICIDE ATTEMPT
     Dosage: 50-1000 MG TABLETS
     Route: 065
  3. QUETIAPINE. [Concomitant]
     Active Substance: QUETIAPINE
  4. GABAPENTIN. [Concomitant]
     Active Substance: GABAPENTIN
  5. RIVAROXABAN [Concomitant]
     Active Substance: RIVAROXABAN
  6. TRAZODONE [Concomitant]
     Active Substance: TRAZODONE HYDROCHLORIDE

REACTIONS (1)
  - Intentional overdose [Fatal]
